FAERS Safety Report 9675307 (Version 1)
Quarter: 2013Q4

REPORT INFORMATION
  Report Type: Spontaneous
  Country: CH (occurrence: CH)
  Receive Date: 20131107
  Receipt Date: 20131107
  Transmission Date: 20140711
  Serious: Yes (Death, Hospitalization)
  Sender: FDA-Public Use
  Company Number: CH-BAYER-2013-133121

PATIENT
  Age: 71 Year
  Sex: Male
  Weight: 87 kg

DRUGS (6)
  1. NEXAVAR [Suspect]
     Indication: HEPATOCELLULAR CARCINOMA
     Dosage: 800 MG, QD
     Route: 048
     Dates: start: 20130502, end: 20130607
  2. ALDACTONE [SPIRONOLACTONE] [Suspect]
     Indication: ASCITES
     Dosage: 25 MG, QD
     Route: 048
     Dates: start: 2009, end: 20130608
  3. AMLODIPINE [Concomitant]
     Indication: ESSENTIAL HYPERTENSION
     Dosage: 5 MG, QD
     Route: 048
     Dates: start: 2012
  4. INDERAL [Concomitant]
     Indication: VARICES OESOPHAGEAL
     Dosage: 40 MG, QD
     Route: 048
     Dates: start: 2009
  5. GLUCOPHAGE [Concomitant]
     Indication: TYPE 2 DIABETES MELLITUS
     Dosage: 1000 MG, QD, 500 MG 2 PER 1 DAY
     Route: 048
     Dates: start: 2009
  6. SORTIS [Concomitant]
     Indication: HYPERCHOLESTEROLAEMIA
     Dosage: 20 MG, QD
     Route: 048
     Dates: start: 2009, end: 20130607

REACTIONS (5)
  - Vomiting [Recovered/Resolved]
  - Diarrhoea [Recovered/Resolved]
  - Hyperkalaemia [Recovered/Resolved]
  - Hyponatraemia [Recovered/Resolved]
  - Death [Fatal]
